FAERS Safety Report 6904203-3 (Version None)
Quarter: 2010Q3

REPORT INFORMATION
  Report Type: 
  Country: None (occurrence: None)
  Receive Date: 20100804
  Receipt Date: 20090327
  Transmission Date: 20110219
  Serious: No
  Sender: FDA-Public Use
  Company Number: US-PFIZER INC-2009191549

PATIENT
  Sex: Female
  Weight: 61.2 kg

DRUGS (10)
  1. LYRICA [Suspect]
     Indication: FIBROMYALGIA
     Dosage: UNK
     Dates: start: 20080701, end: 20080101
  2. LORTAB [Concomitant]
     Dosage: UNK
  3. FLEXERIL [Concomitant]
     Dosage: UNK
  4. BUTALBITAL W/ ASPIRIN + CAFFEINE [Concomitant]
     Dosage: UNK
  5. LEVOXYL [Concomitant]
     Dosage: UNK
  6. NIFEDIPINE [Concomitant]
     Dosage: UNK
  7. PROMETHAZINE [Concomitant]
     Dosage: UNK
  8. VALIUM [Concomitant]
     Dosage: UNK
  9. PRILOSEC [Concomitant]
     Dosage: UNK
  10. CELEBREX [Concomitant]
     Dosage: UNK

REACTIONS (4)
  - APATHY [None]
  - FEELING ABNORMAL [None]
  - HEADACHE [None]
  - NAUSEA [None]
